FAERS Safety Report 24083232 (Version 1)
Quarter: 2024Q3

REPORT INFORMATION
  Report Type: Spontaneous
  Country: US (occurrence: US)
  Receive Date: 20240712
  Receipt Date: 20240712
  Transmission Date: 20241016
  Serious: No
  Sender: ALKEM
  Company Number: US-ALKEM LABORATORIES LIMITED-US-ALKEM-2024-09399

PATIENT
  Weight: 79.6 kg

DRUGS (1)
  1. TOLVAPTAN [Suspect]
     Active Substance: TOLVAPTAN
     Indication: Hyponatraemia
     Dosage: 30 MILLIGRAM, QD
     Route: 048
     Dates: start: 20240402

REACTIONS (1)
  - Drug ineffective [Unknown]
